FAERS Safety Report 8173697-0 (Version None)
Quarter: 2012Q1

REPORT INFORMATION
  Report Type: 
  Country: None (occurrence: None)
  Receive Date: 20120229
  Receipt Date: 20120221
  Transmission Date: 20120608
  Serious: Yes (Hospitalization)
  Sender: FDA-Public Use
  Company Number: US-ACTELION-A-US2012-60503

PATIENT

DRUGS (2)
  1. REVATIO [Concomitant]
  2. TRACLEER [Suspect]
     Indication: PULMONARY ARTERIAL HYPERTENSION
     Dosage: UNK
     Route: 048
     Dates: start: 20090806

REACTIONS (4)
  - COUGH [None]
  - RESPIRATORY SYNCYTIAL VIRUS INFECTION [None]
  - PYREXIA [None]
  - RESPIRATORY TRACT CONGESTION [None]
